FAERS Safety Report 16709554 (Version 1)
Quarter: 2019Q3

REPORT INFORMATION
  Report Type: Report from Study
  Country: None (occurrence: CA)
  Receive Date: 20190816
  Receipt Date: 20190816
  Transmission Date: 20191004
  Serious: Yes (Other)
  Sender: FDA-Public Use
  Company Number: CA-ABBVIE-19K-028-2889890-00

PATIENT
  Age: 76 Year
  Sex: Male

DRUGS (1)
  1. LUPRON DEPOT [Suspect]
     Active Substance: LEUPROLIDE ACETATE
     Indication: PROSTATE CANCER
     Route: 030
     Dates: start: 20151127

REACTIONS (2)
  - Asthenia [Not Recovered/Not Resolved]
  - Stent removal [Unknown]

NARRATIVE: CASE EVENT DATE: 20190812
